FAERS Safety Report 16797531 (Version 12)
Quarter: 2020Q2

REPORT INFORMATION
  Report Type: Spontaneous
  Country: JP (occurrence: JP)
  Receive Date: 20190912
  Receipt Date: 20200409
  Transmission Date: 20200713
  Serious: Yes (Death, Other)
  Sender: FDA-Public Use
  Company Number: JP-ASTELLAS-2019JP020006

PATIENT
  Age: 70 Year
  Sex: Female

DRUGS (8)
  1. XOSPATA [Suspect]
     Active Substance: GILTERITINIB
     Route: 048
     Dates: start: 20191016, end: 20191024
  2. XOSPATA [Suspect]
     Active Substance: GILTERITINIB
     Route: 048
     Dates: start: 20200109
  3. XOSPATA [Suspect]
     Active Substance: GILTERITINIB
     Route: 048
     Dates: start: 20191105, end: 20191128
  4. VORICONAZOLE. [Suspect]
     Active Substance: VORICONAZOLE
     Dosage: 400 MG/DAY, UNKNOWN FREQ.
     Route: 048
     Dates: start: 20200110, end: 20200111
  5. XOSPATA [Suspect]
     Active Substance: GILTERITINIB
     Indication: ACUTE MYELOID LEUKAEMIA RECURRENT
     Route: 048
     Dates: start: 20190905, end: 20190909
  6. XOSPATA [Suspect]
     Active Substance: GILTERITINIB
     Route: 048
     Dates: start: 20190911, end: 20190918
  7. XOSPATA [Suspect]
     Active Substance: GILTERITINIB
     Route: 048
     Dates: start: 20190919, end: 20191003
  8. VORICONAZOLE. [Suspect]
     Active Substance: VORICONAZOLE
     Indication: FUNGAL INFECTION
     Dosage: 600 MG/DAY, UNKNOWN FREQ.
     Route: 048
     Dates: start: 20190909, end: 20190910

REACTIONS (8)
  - Pneumonia [Recovered/Resolved]
  - Anaemia [Recovered/Resolved]
  - Cerebral haemorrhage [Fatal]
  - Melaena [Recovered/Resolved]
  - White blood cell count decreased [Recovered/Resolved]
  - Dysgeusia [Recovered/Resolved]
  - Oedema peripheral [Recovered/Resolved]
  - Hepatic function abnormal [Recovered/Resolved]

NARRATIVE: CASE EVENT DATE: 20190906
